FAERS Safety Report 8474356-7 (Version None)
Quarter: 2012Q2

REPORT INFORMATION
  Report Type: 
  Country: None (occurrence: None)
  Receive Date: 20120628
  Receipt Date: 20110712
  Transmission Date: 20120825
  Serious: Yes (Death)
  Sender: FDA-Public Use
  Company Number: US-MYLANLABS-2011S1012998

PATIENT
  Age: 53 Year
  Sex: Female

DRUGS (14)
  1. SIMVASTATIN [Concomitant]
  2. CLOZAPINE [Suspect]
     Route: 048
  3. URECHOLINE [Concomitant]
  4. PREVACID [Concomitant]
  5. VITAMIN E [Concomitant]
  6. COGENTIN [Concomitant]
  7. PROZAC [Concomitant]
  8. FISH OIL [Concomitant]
  9. DUONEB [Concomitant]
  10. ALBUTEROL [Concomitant]
  11. SPIRIVA [Concomitant]
  12. CLOZAPINE [Suspect]
     Route: 048
  13. KLONOPIN [Concomitant]
  14. CLOZAPINE [Suspect]
     Indication: SCHIZOAFFECTIVE DISORDER
     Route: 048

REACTIONS (1)
  - RESPIRATORY DISORDER [None]
